FAERS Safety Report 12980526 (Version 1)
Quarter: 2016Q4

REPORT INFORMATION
  Report Type: Spontaneous
  Country: DE (occurrence: DE)
  Receive Date: 20161128
  Receipt Date: 20161128
  Transmission Date: 20170207
  Serious: Yes (Hospitalization)
  Sender: FDA-Public Use
  Company Number: DE-MYLANLABS-2016M1051298

PATIENT

DRUGS (12)
  1. ARIPIPRAZOLE. [Suspect]
     Active Substance: ARIPIPRAZOLE
     Dosage: 5 MG, QD
     Route: 048
     Dates: start: 20160121
  2. QUETIAPINE. [Suspect]
     Active Substance: QUETIAPINE
     Dosage: 400 MG, UNK
     Route: 048
     Dates: start: 20160130
  3. QUETIAPINE. [Suspect]
     Active Substance: QUETIAPINE
     Dosage: 425 MG, QD
     Route: 048
     Dates: start: 20160205
  4. ARIPIPRAZOLE. [Suspect]
     Active Substance: ARIPIPRAZOLE
     Indication: MENTAL DISORDER
     Dosage: 15 MG, QD
     Route: 048
     Dates: start: 20160103, end: 20160106
  5. QUETIAPINE. [Suspect]
     Active Substance: QUETIAPINE
     Indication: MENTAL DISORDER
     Dosage: 50 MG, QD
     Route: 048
     Dates: start: 20160107
  6. QUETIAPINE. [Suspect]
     Active Substance: QUETIAPINE
     Dosage: 75 MG, QD
     Route: 048
     Dates: start: 20160108
  7. QUETIAPINE. [Suspect]
     Active Substance: QUETIAPINE
     Dosage: 100 MG, QD
     Route: 048
     Dates: start: 20160109, end: 20160118
  8. ARIPIPRAZOLE. [Suspect]
     Active Substance: ARIPIPRAZOLE
     Dosage: 10 MG, QD
     Route: 048
     Dates: start: 20160107, end: 20170120
  9. QUETIAPINE. [Suspect]
     Active Substance: QUETIAPINE
     Dosage: 125 MG, QD
     Route: 048
     Dates: start: 20160119, end: 20160124
  10. QUETIAPINE. [Suspect]
     Active Substance: QUETIAPINE
     Dosage: 300 MG, QD
     Route: 048
     Dates: start: 20160128
  11. QUETIAPINE. [Suspect]
     Active Substance: QUETIAPINE
     Dosage: 200 MG, QD
     Route: 048
     Dates: start: 20160125, end: 20160127
  12. QUETIAPINE. [Suspect]
     Active Substance: QUETIAPINE
     Dosage: 350 MG, QD
     Route: 048
     Dates: start: 20160129

REACTIONS (4)
  - Bruxism [Unknown]
  - Rabbit syndrome [Unknown]
  - Dyskinesia [Recovered/Resolved]
  - Urinary incontinence [Unknown]

NARRATIVE: CASE EVENT DATE: 20160120
